FAERS Safety Report 18756765 (Version 1)
Quarter: 2021Q1

REPORT INFORMATION
  Report Type: Spontaneous
  Country: CA (occurrence: CA)
  Receive Date: 20210119
  Receipt Date: 20210119
  Transmission Date: 20210419
  Serious: Yes (Hospitalization)
  Sender: FDA-Public Use
  Company Number: CA-JNJFOC-20210122262

PATIENT
  Sex: Male

DRUGS (1)
  1. CONCERTA [Suspect]
     Active Substance: METHYLPHENIDATE HYDROCHLORIDE
     Indication: PRODUCT USED FOR UNKNOWN INDICATION
     Route: 065

REACTIONS (14)
  - Cardiovascular disorder [Unknown]
  - Insomnia [Unknown]
  - Lactose intolerance [Unknown]
  - Vertigo [Unknown]
  - Nystagmus [Unknown]
  - Semen discolouration [Unknown]
  - Fatigue [Unknown]
  - Dyspepsia [Unknown]
  - Abnormal faeces [Unknown]
  - Mania [Unknown]
  - Abdominal pain upper [Unknown]
  - Gluten sensitivity [Unknown]
  - Hyperhidrosis [Unknown]
  - Agitation [Unknown]
